FAERS Safety Report 7470151-6 (Version None)
Quarter: 2011Q2

REPORT INFORMATION
  Report Type: 
  Country: None (occurrence: None)
  Receive Date: 20110510
  Receipt Date: 20110421
  Transmission Date: 20111010
  Serious: Yes (Death)
  Sender: FDA-Public Use
  Company Number: B0708914A

PATIENT
  Sex: Female
  Weight: 85 kg

DRUGS (14)
  1. TIGECYCLINE [Concomitant]
  2. TACROLIMUS [Concomitant]
  3. VERPAMIL [Concomitant]
  4. RELENZA [Suspect]
     Route: 042
     Dates: start: 20110210, end: 20110215
  5. COTRIMAZOL [Concomitant]
  6. DIGITOXIN TAB [Concomitant]
  7. LEVOTHYROXINE SODIUM [Concomitant]
  8. AMIODARONE HCL [Concomitant]
  9. PANTOPRAZOL [Concomitant]
  10. PROPOFOL [Concomitant]
  11. SUFENTANYL [Concomitant]
  12. METRONIDAZOLE [Concomitant]
  13. FLUCONAZOLE [Concomitant]
  14. MYCOPHENOLATE MOFETIL [Concomitant]

REACTIONS (1)
  - PULMONARY FIBROSIS [None]
